FAERS Safety Report 8060776 (Version 7)
Quarter: 2013Q4

REPORT INFORMATION
  Report Type: Report from Study
  Country: US (occurrence: US)
  Receive Date: 20110729
  Receipt Date: 20131208
  Transmission Date: 20140711
  Serious: Yes (Hospitalization)
  Sender: FDA-Public Use
  Company Number: US-ROCHE-592905

PATIENT
  Age: 45 Year
  Sex: Female
  Weight: 117 kg

DRUGS (18)
  1. TRASTUZUMAB [Suspect]
     Indication: BREAST CANCER
     Dosage: TOTAL DOSE: 940 MG; FORM : VIALS; LAST DOSE PROR TO EVENT ON 9 OCT 08
     Route: 042
  2. TRASTUZUMAB [Suspect]
     Dosage: DOSE: 708.
     Route: 042
  3. BEVACIZUMAB [Suspect]
     Indication: BREAST CANCER
     Dosage: TOTAL DOSE: 1770 MG; FORM: VIALS; LAST DOSE PRIOR TO EVENT ON 9 OCT 2008
     Route: 042
  4. SARGAMOSTIM [Suspect]
     Indication: PRODUCT USED FOR UNKNOWN INDICATION
     Route: 030
  5. DOCETAXEL [Suspect]
     Indication: BREAST CANCER
     Dosage: FORM : VIAL. TOTAL DOSE :172. LAST DOSE PRIOR TO EVENT ON 09/OCT/2008
     Route: 042
     Dates: start: 20081009
  6. CARBOPLATIN [Suspect]
     Indication: BREAST CANCER
     Dosage: DOSAGE : 6 AUC, TOTAL DOSE 1130MG, LAST DOSE PRIOR TO EVENT 09/OCT/2008.
     Route: 042
     Dates: start: 20081009
  7. ADVAIR [Concomitant]
     Route: 065
  8. XANAX [Concomitant]
     Route: 065
  9. SYNTHROID [Concomitant]
     Route: 065
  10. AMITRIPTYLINE [Concomitant]
     Route: 065
  11. NASONEX [Concomitant]
     Route: 065
  12. PAXIL [Concomitant]
     Route: 065
  13. LOMOTIL (UNITED STATES) [Concomitant]
     Route: 065
  14. PHENERGAN [Concomitant]
     Route: 065
  15. KYTRIL [Concomitant]
     Route: 065
  16. KYTRIL [Concomitant]
     Route: 065
  17. GABAPENTIN [Concomitant]
     Route: 065
  18. CELL WISE [Concomitant]
     Route: 065

REACTIONS (3)
  - Diverticulitis [Recovered/Resolved]
  - Pneumonia [Recovered/Resolved]
  - Chest pain [Recovered/Resolved]
